FAERS Safety Report 18817953 (Version 1)
Quarter: 2021Q1

REPORT INFORMATION
  Report Type: Spontaneous
  Country: US (occurrence: US)
  Receive Date: 20210201
  Receipt Date: 20210201
  Transmission Date: 20210419
  Serious: No
  Sender: FDA-Public Use
  Company Number: US-JNJFOC-20210143824

PATIENT
  Age: 40 Year

DRUGS (4)
  1. BENADRYL [Suspect]
     Active Substance: DIPHENHYDRAMINE HYDROCHLORIDE
     Indication: INJECTION RELATED REACTION
     Route: 048
     Dates: start: 20210106
  2. PARACETAMOL [Suspect]
     Active Substance: ACETAMINOPHEN
     Indication: INJECTION RELATED REACTION
     Route: 048
     Dates: start: 20210106
  3. IBUPROFEN. [Suspect]
     Active Substance: IBUPROFEN
     Indication: INJECTION RELATED REACTION
     Route: 048
     Dates: start: 20210106
  4. COVID?19 VACCINE NOS. [Concomitant]
     Active Substance: COVID-19 VACCINE NOS
     Indication: PRODUCT USED FOR UNKNOWN INDICATION
     Route: 030
     Dates: start: 20210106

REACTIONS (3)
  - Product use in unapproved indication [Unknown]
  - Off label use [Unknown]
  - Therapeutic response unexpected [Unknown]

NARRATIVE: CASE EVENT DATE: 20210106
